APPROVED DRUG PRODUCT: ZOLMITRIPTAN
Active Ingredient: ZOLMITRIPTAN
Strength: 5MG
Dosage Form/Route: TABLET;ORAL
Application: A090861 | Product #002
Applicant: ANI PHARMACEUTICALS INC
Approved: Mar 4, 2014 | RLD: No | RS: No | Type: DISCN